FAERS Safety Report 25206231 (Version 2)
Quarter: 2025Q2

REPORT INFORMATION
  Report Type: Report from Study
  Country: CA (occurrence: CA)
  Receive Date: 20250417
  Receipt Date: 20250429
  Transmission Date: 20250716
  Serious: Yes (Hospitalization)
  Sender: JOHNSON AND JOHNSON
  Company Number: CA-JNJFOC-20250404867

PATIENT
  Age: 73 Year
  Sex: Female

DRUGS (9)
  1. REMICADE [Suspect]
     Active Substance: INFLIXIMAB
     Indication: Product used for unknown indication
     Dosage: EXPIRY: MA-2027
     Route: 041
     Dates: start: 20170329
  2. METHOTREXATE [Concomitant]
     Active Substance: METHOTREXATE
  3. METFORMIN [Concomitant]
     Active Substance: METFORMIN HYDROCHLORIDE
  4. HUMULIN N [Concomitant]
     Active Substance: INSULIN HUMAN
  5. FOLIC ACID [Concomitant]
     Active Substance: FOLIC ACID
  6. PERINDOPRIL ARGININE [Concomitant]
     Active Substance: PERINDOPRIL ARGININE
  7. EZETIMIBE [Concomitant]
     Active Substance: EZETIMIBE
  8. TRESIBA [Concomitant]
     Active Substance: INSULIN DEGLUDEC
  9. FENOFIBRATE [Concomitant]
     Active Substance: FENOFIBRATE

REACTIONS (3)
  - Pneumonia [Recovering/Resolving]
  - Herpes zoster [Recovered/Resolved]
  - H1N1 influenza [Recovering/Resolving]

NARRATIVE: CASE EVENT DATE: 20250305
